FAERS Safety Report 8687760 (Version 2)
Quarter: 2012Q4

REPORT INFORMATION
  Report Type: Report from Study
  Country: DE (occurrence: DE)
  Receive Date: 20120727
  Receipt Date: 20120918
  Transmission Date: 20130627
  Serious: Yes (Hospitalization)
  Sender: FDA-Public Use
  Company Number: DE-ABBOTT-12P-062-0960116-00

PATIENT
  Age: 84 Year
  Sex: Male

DRUGS (1)
  1. ENANTONE 3.75 MG [Suspect]
     Indication: PROSTATE CANCER
     Route: 058
     Dates: start: 20010419

REACTIONS (2)
  - Coronary artery disease [Recovering/Resolving]
  - Myocardial infarction [Recovering/Resolving]
